FAERS Safety Report 9298611 (Version 2)
Quarter: 2013Q3

REPORT INFORMATION
  Report Type: Report from Study
  Country: US (occurrence: US)
  Receive Date: 20130520
  Receipt Date: 20130917
  Transmission Date: 20140515
  Serious: Yes (Hospitalization, Other)
  Sender: FDA-Public Use
  Company Number: US-ELI_LILLY_AND_COMPANY-US201305001668

PATIENT
  Age: 51 Year
  Sex: Female

DRUGS (5)
  1. DULOXETINE HYDROCHLORIDE [Suspect]
     Indication: FIBROMYALGIA
     Dosage: 60 MG, BID
  2. DULOXETINE HYDROCHLORIDE [Suspect]
     Indication: DEPRESSION
  3. DULOXETINE HYDROCHLORIDE [Suspect]
     Indication: ANXIETY
  4. EFFEXOR [Suspect]
  5. GABAPENTIN [Concomitant]

REACTIONS (6)
  - Cerebrovascular accident [Not Recovered/Not Resolved]
  - Transient ischaemic attack [Not Recovered/Not Resolved]
  - Amnesia [Not Recovered/Not Resolved]
  - Fall [Not Recovered/Not Resolved]
  - Humerus fracture [Not Recovered/Not Resolved]
  - Radial nerve injury [Not Recovered/Not Resolved]
